FAERS Safety Report 13683888 (Version 1)
Quarter: 2017Q2

REPORT INFORMATION
  Report Type: Spontaneous
  Country: US (occurrence: US)
  Receive Date: 20170623
  Receipt Date: 20170623
  Transmission Date: 20170830
  Serious: No
  Sender: FDA-Public Use
  Company Number: US-PFIZER INC-2017269382

PATIENT
  Age: 59 Year
  Sex: Female

DRUGS (10)
  1. TRAVATAN [Suspect]
     Active Substance: TRAVOPROST
     Dosage: UNK
  2. XALATAN [Suspect]
     Active Substance: LATANOPROST
     Dosage: UNK
  3. NEOMYCIN SULFATE. [Suspect]
     Active Substance: NEOMYCIN SULFATE
     Dosage: UNK
  4. VIOXX [Suspect]
     Active Substance: ROFECOXIB
     Dosage: UNK
  5. NEURONTIN [Suspect]
     Active Substance: GABAPENTIN
     Dosage: UNK
  6. COMPAZINE [Suspect]
     Active Substance: PROCHLORPERAZINE MALEATE
     Dosage: UNK
  7. DOBUTAMINE HCL [Suspect]
     Active Substance: DOBUTAMINE HYDROCHLORIDE
     Dosage: UNK
  8. CARDIZEM [Suspect]
     Active Substance: DILTIAZEM HYDROCHLORIDE
     Dosage: UNK
  9. MERIDIA [Suspect]
     Active Substance: SIBUTRAMINE HYDROCHLORIDE
     Dosage: UNK
  10. ZOCOR [Suspect]
     Active Substance: SIMVASTATIN
     Dosage: UNK

REACTIONS (1)
  - Drug hypersensitivity [Not Recovered/Not Resolved]
